FAERS Safety Report 6273303-6 (Version None)
Quarter: 2009Q3

REPORT INFORMATION
  Report Type: 
  Country: None (occurrence: None)
  Receive Date: 20090720
  Receipt Date: 20090706
  Transmission Date: 20100115
  Serious: Yes (Hospitalization, Other)
  Sender: FDA-Public Use
  Company Number: IT-ELI_LILLY_AND_COMPANY-IT200907000986

PATIENT
  Age: 57 Year
  Sex: Male

DRUGS (6)
  1. ALIMTA [Suspect]
     Indication: LUNG ADENOCARCINOMA
     Dosage: 500 MG/M2, DAY 1 EVERY 3 WEEKS
  2. ALIMTA [Suspect]
     Dosage: DECREASE BY 25%
  3. GEMCITABINE HCL [Suspect]
     Indication: LUNG ADENOCARCINOMA
     Dosage: 1200 MG/M2, DAY 1 AND 8 EVERY 3 WEEKS
  4. CISPLATIN [Concomitant]
     Indication: LUNG ADENOCARCINOMA
     Dosage: 80 MG/M2, DAY 1 EVERY 3 WEEKS
  5. VITAMINS [Concomitant]
     Indication: PROPHYLAXIS
  6. DEXAMETHASONE [Concomitant]
     Indication: PROPHYLAXIS

REACTIONS (11)
  - ABDOMINAL PAIN [None]
  - ANAEMIA [None]
  - BLOOD CREATININE INCREASED [None]
  - BLOOD DISORDER [None]
  - CAECITIS [None]
  - FATIGUE [None]
  - MALIGNANT NEOPLASM PROGRESSION [None]
  - NEUTROPENIA [None]
  - PYREXIA [None]
  - THROMBOCYTOPENIA [None]
  - WHITE BLOOD CELL COUNT DECREASED [None]
